FAERS Safety Report 15926234 (Version 3)
Quarter: 2019Q2

REPORT INFORMATION
  Report Type: Spontaneous
  Country: US (occurrence: US)
  Receive Date: 20190206
  Receipt Date: 20190430
  Transmission Date: 20190711
  Serious: Yes (Other)
  Sender: FDA-Public Use
  Company Number: US-ASTRAZENECA-2019SE19451

PATIENT
  Age: 936 Month
  Sex: Female
  Weight: 88.9 kg

DRUGS (5)
  1. SYNTHROID [Concomitant]
     Active Substance: LEVOTHYROXINE SODIUM
     Indication: THYROID DISORDER
     Route: 048
     Dates: start: 1991
  2. BABY ASPIRIN [Concomitant]
     Active Substance: ASPIRIN
     Indication: ADJUVANT THERAPY
     Route: 048
     Dates: start: 20180726
  3. BRILINTA [Suspect]
     Active Substance: TICAGRELOR
     Indication: STENT PLACEMENT
     Route: 048
     Dates: start: 20180726, end: 201810
  4. BRILINTA [Suspect]
     Active Substance: TICAGRELOR
     Indication: MYOCARDIAL INFARCTION
     Route: 048
     Dates: start: 20180726, end: 201810
  5. PLAVIX [Concomitant]
     Active Substance: CLOPIDOGREL BISULFATE
     Dates: start: 20181024

REACTIONS (10)
  - Deafness [Not Recovered/Not Resolved]
  - Headache [Unknown]
  - Epistaxis [Recovered/Resolved]
  - Loss of consciousness [Unknown]
  - Diplopia [Recovered/Resolved]
  - Decreased activity [Unknown]
  - Nausea [Recovered/Resolved]
  - Tinnitus [Unknown]
  - Dizziness [Unknown]
  - Vertigo positional [Recovering/Resolving]

NARRATIVE: CASE EVENT DATE: 201809
